FAERS Safety Report 16261577 (Version 1)
Quarter: 2019Q2

REPORT INFORMATION
  Report Type: Spontaneous
  Country: NL (occurrence: NL)
  Receive Date: 20190501
  Receipt Date: 20190501
  Transmission Date: 20190711
  Serious: Yes (Other)
  Sender: FDA-Public Use
  Company Number: PHHY2019NL080417

PATIENT
  Age: 31 Year
  Sex: Female

DRUGS (5)
  1. CISPLATIN. [Suspect]
     Active Substance: CISPLATIN
     Indication: OSTEOSARCOMA
  2. METHYLPREDNISOLONE. [Suspect]
     Active Substance: METHYLPREDNISOLONE
     Indication: PRODUCT USED FOR UNKNOWN INDICATION
     Dosage: 60 MG, UNK
     Route: 065
  3. DOXORUBICIN [Suspect]
     Active Substance: DOXORUBICIN
     Indication: SPINDLE CELL SARCOMA
     Dosage: 50 MG, UNK (50 MG DAY 1-3, 2 COURSES)
     Route: 065
  4. CISPLATIN. [Suspect]
     Active Substance: CISPLATIN
     Indication: SPINDLE CELL SARCOMA
     Dosage: 100 MG/M2 (20 MG/M2 ADMINISTERED OVER FIVE CONSECUTIVE DAYS (DAY 1?5 Q 21 D))
     Route: 042
     Dates: start: 20140115, end: 20140614
  5. METHOTREXATE. [Suspect]
     Active Substance: METHOTREXATE
     Indication: SPINDLE CELL SARCOMA
     Route: 065

REACTIONS (7)
  - Hypersensitivity [Recovered/Resolved]
  - Rash [Recovered/Resolved]
  - Product use in unapproved indication [Unknown]
  - Premature delivery [Unknown]
  - Metastases to bone [Unknown]
  - Maternal exposure during pregnancy [Unknown]
  - Metastases to lung [Recovered/Resolved]

NARRATIVE: CASE EVENT DATE: 20140201
